FAERS Safety Report 7776126-1 (Version None)
Quarter: 2011Q3

REPORT INFORMATION
  Report Type: 
  Country: None (occurrence: None)
  Receive Date: 20110925
  Receipt Date: 20110506
  Transmission Date: 20111222
  Serious: Yes (Other)
  Sender: FDA-Public Use
  Company Number: PHHY2011NO38125

PATIENT
  Sex: Female

DRUGS (2)
  1. VALPROATE SODIUM [Suspect]
     Indication: EPILEPSY
     Dosage: 1050 MG, UNK
     Route: 048
  2. TRILEPTAL [Suspect]
     Indication: EPILEPSY
     Dosage: 900 MG, UNK
     Route: 048

REACTIONS (4)
  - SOMATIC DELUSION [None]
  - DEPRESSIVE SYMPTOM [None]
  - ANXIETY [None]
  - OBSESSIVE-COMPULSIVE DISORDER [None]
